FAERS Safety Report 9069698 (Version 2)
Quarter: 2014Q1

REPORT INFORMATION
  Report Type: Report from Study
  Country: DE (occurrence: DE)
  Receive Date: 20130215
  Receipt Date: 20140218
  Transmission Date: 20141002
  Serious: Yes (Other)
  Sender: FDA-Public Use
  Company Number: DE-OTSUKA-EU-2011-10243

PATIENT
  Sex: Female
  Weight: 45 kg

DRUGS (28)
  1. SAMSCA [Suspect]
     Indication: INAPPROPRIATE ANTIDIURETIC HORMONE SECRETION
     Dosage: 7.5 MG MILLIGRAM(S), QOD
     Route: 048
     Dates: start: 20110421, end: 20110426
  2. SAMSCA [Suspect]
     Indication: NEOPLASM
     Dosage: 7.5 MG MILLIGRAM(S), DAILY DOSE
     Route: 048
     Dates: start: 20110427, end: 20120209
  3. SAMSCA [Suspect]
     Indication: HYPONATRAEMIA
     Dosage: 15 MG MILLIGRAM(S), DAILY DOSE
     Route: 048
     Dates: start: 20120210
  4. AMLODIPINE [Concomitant]
     Indication: HYPERTENSION
     Dosage: 5 MG MILLIGRAM(S), DAILY DOSE
     Route: 048
     Dates: start: 20110418
  5. UNACID PD [Concomitant]
     Indication: LUNG INFECTION
     Dosage: 750 MG MILLIGRAM(S), DAILY DOSE
     Route: 048
     Dates: start: 20110420, end: 20110426
  6. ATACAND [Concomitant]
     Indication: HYPERTENSION
     Dosage: 24 MG MILLIGRAM(S), DAILY DOSE
     Route: 048
  7. L-THYROXINE [Concomitant]
     Indication: HYPERTENSION
     Dosage: 100 MCG, DAILY DOSE
     Route: 048
  8. VIANI [Concomitant]
     Indication: CHRONIC OBSTRUCTIVE PULMONARY DISEASE
     Dosage: 2 DF DOSAGE FORM, DAILY DOSE
     Route: 007
     Dates: start: 20110418
  9. SPIRIVA [Concomitant]
     Indication: CHRONIC OBSTRUCTIVE PULMONARY DISEASE
     Dosage: 2 DF DOSAGE FORM, DAILY DOSE
     Route: 007
     Dates: end: 20110415
  10. SPIRIVA [Concomitant]
     Dosage: 1 DF DOSAGE FORM, DAILY DOSE
     Route: 007
     Dates: start: 20110416
  11. CODEINE [Concomitant]
     Indication: LUNG INFECTION
     Dosage: 20 GTT DROP(S), DAILY DOSE
     Route: 048
     Dates: end: 20110418
  12. GABENTIN [Concomitant]
     Dosage: 1200 MG MILLIGRAM(S), DAILY DOSE
     Route: 048
     Dates: end: 20110518
  13. FOSTER [Concomitant]
     Indication: CHRONIC OBSTRUCTIVE PULMONARY DISEASE
     Dosage: 4 DF DOSAGE FORM, DAILY DOSE
     Route: 007
     Dates: end: 20110415
  14. ARLEVERT [Concomitant]
     Indication: DIZZINESS
     Dosage: 3 DF DOSAGE FORM, DAILY DOSE
     Route: 048
     Dates: end: 20110418
  15. ARLEVERT [Concomitant]
     Indication: VERTIGO
  16. FRAGMIN P [Concomitant]
     Indication: THROMBOSIS PROPHYLAXIS
     Dosage: 1 DF DOSAGE FORM, DAILY DOSE
     Route: 058
     Dates: start: 20110415, end: 20110429
  17. SOLOSIN [Concomitant]
     Indication: CHRONIC OBSTRUCTIVE PULMONARY DISEASE
     Dosage: 20 GTT DROP(S), DAILY DOSE
     Route: 048
     Dates: end: 20110414
  18. NOVAMINSULFON [Concomitant]
     Dosage: 3 DF DOSAGE FORM, DAILY DOSE
     Route: 048
     Dates: end: 20110414
  19. DEHYDROSANOL [Concomitant]
     Indication: VERTIGO
     Dosage: 1 DF DOSAGE FORM, DAILY DOSE
     Route: 048
     Dates: end: 20110414
  20. SODIUM CHLORIDE [Concomitant]
     Indication: HYPONATRAEMIA
     Dosage: 2 DF DOSAGE FORM, DAILY DOSE
     Route: 048
     Dates: end: 20110414
  21. RINGER [Concomitant]
     Indication: HYPOVOLAEMIA
     Dosage: 500 ML MILLILITRE(S), DAILY DOSE
     Route: 042
     Dates: start: 20110416, end: 20110417
  22. RINGER [Concomitant]
     Dosage: 1000 ML MILLILITRE(S), DAILY DOSE
     Route: 042
     Dates: start: 20110418, end: 20110418
  23. ASS [Concomitant]
     Indication: ACUTE MYOCARDIAL INFARCTION
     Dosage: 100 MG MILLIGRAM(S), DAILY DOSE
     Route: 048
     Dates: start: 20110512
  24. NOVALGIN [Concomitant]
     Indication: RIB FRACTURE
     Dosage: 90 GTT DROP(S), DAILY DOSE
     Route: 048
     Dates: start: 20110512
  25. TRAMADOL [Concomitant]
     Indication: RIB FRACTURE
     Dosage: 60 GTT DROP(S), DAILY DOSE
     Route: 048
     Dates: start: 20110512
  26. PANTOPRAZOLE [Concomitant]
     Indication: PROPHYLAXIS
     Dosage: 40 MG MILLIGRAM(S), DAILY DOSE
     Route: 048
     Dates: start: 20110415, end: 20110418
  27. EBRANTIL [Concomitant]
     Indication: HYPERTENSION
     Dosage: 150 MG MILLIGRAM(S), DAILY DOSE
     Route: 042
     Dates: start: 20110415, end: 20110415
  28. SALINE [Concomitant]
     Dosage: 308 MMOL MILLIMOLE(S), UNKNOWN
     Route: 065
     Dates: start: 20110415, end: 20110416

REACTIONS (12)
  - Hypertensive crisis [Recovered/Resolved]
  - Fall [Recovering/Resolving]
  - Rib fracture [Recovering/Resolving]
  - Acute myocardial infarction [Recovered/Resolved]
  - Hypertension [Recovered/Resolved]
  - Hyperventilation [Recovered/Resolved]
  - Depressed mood [Recovered/Resolved]
  - Tearfulness [Recovered/Resolved]
  - Urinary tract infection [Recovered/Resolved]
  - Respiratory tract infection [Recovered/Resolved]
  - Wrong technique in drug usage process [Unknown]
  - Incorrect drug administration rate [Unknown]
